FAERS Safety Report 19456432 (Version 1)
Quarter: 2021Q2

REPORT INFORMATION
  Report Type: Spontaneous
  Country: US (occurrence: US)
  Receive Date: 20210624
  Receipt Date: 20210624
  Transmission Date: 20210717
  Serious: Yes (Hospitalization)
  Sender: FDA-Public Use
  Company Number: US-STRIDES ARCOLAB LIMITED-2021SP005978

PATIENT
  Age: 55 Year
  Sex: Male

DRUGS (1)
  1. PREDNISOLONE. [Suspect]
     Active Substance: PREDNISOLONE
     Indication: BACK PAIN
     Dosage: UNK, TAPER FOR 3 WEEKS
     Route: 065

REACTIONS (4)
  - Mycobacterium abscessus infection [Recovered/Resolved]
  - Endocarditis [Recovered/Resolved]
  - Osteomyelitis [Recovered/Resolved]
  - Off label use [Unknown]
